FAERS Safety Report 4303379-4 (Version None)
Quarter: 2004Q1

REPORT INFORMATION
  Report Type: 
  Country: None (occurrence: None)
  Receive Date: 20040223
  Receipt Date: 20040102
  Transmission Date: 20041129
  Serious: Yes (Hospitalization)
  Sender: FDA-Public Use
  Company Number: F01200400008

PATIENT
  Age: 65 Year
  Sex: Male

DRUGS (6)
  1. (OXALIPLATIN) -SOLUTION- 130 MG/M2 [Suspect]
     Indication: RECTAL CANCER
     Dosage: 247 MG Q3W, INTRAVENOUS NOS
     Route: 042
     Dates: start: 20031208, end: 20041208
  2. CAPECITABINE - TABLET  - 200 MG/M2 [Suspect]
     Dosage: 1900 MG TWICE A DAY GIVEN ORALLY FOR 14 DAYS FOLLOWED  BY 7 DAYS REST, Q3W
     Route: 048
     Dates: start: 20031208, end: 20031219
  3. LOSARTAN [Concomitant]
  4. SIMVASTATIN [Concomitant]
  5. HYDROCHLOROTHIAZIDE [Concomitant]
  6. LOSEC (OMEPRAZOLE) [Concomitant]

REACTIONS (6)
  - HEMIPARESIS [None]
  - MYOCARDIAL INFARCTION [None]
  - NEUTROPENIA [None]
  - PULMONARY EMBOLISM [None]
  - SEPSIS [None]
  - THROMBOTIC STROKE [None]
